FAERS Safety Report 8303030-2 (Version None)
Quarter: 2012Q2

REPORT INFORMATION
  Report Type: 
  Country: None (occurrence: None)
  Receive Date: 20120421
  Receipt Date: 20120409
  Transmission Date: 20120825
  Serious: No
  Sender: FDA-Public Use
  Company Number: US-ROXANE LABORATORIES, INC.-2012-RO-01009RO

PATIENT
  Sex: Female

DRUGS (2)
  1. SLEEPING PILL [Concomitant]
  2. OXYCODONE AND ACETAMINOPHEN [Suspect]
     Indication: PAIN
     Route: 048
     Dates: start: 20120408, end: 20120408

REACTIONS (1)
  - DRUG INEFFECTIVE [None]
